FAERS Safety Report 17734296 (Version 4)
Quarter: 2020Q3

REPORT INFORMATION
  Report Type: Report from Study
  Country: US (occurrence: US)
  Receive Date: 20200501
  Receipt Date: 20200904
  Transmission Date: 20201102
  Serious: Yes (Other)
  Sender: FDA-Public Use
  Company Number: NVSC2020US116890

PATIENT
  Sex: Female

DRUGS (2)
  1. COSENTYX [Suspect]
     Active Substance: SECUKINUMAB
     Indication: PSORIASIS
  2. COSENTYX [Suspect]
     Active Substance: SECUKINUMAB
     Indication: PSORIATIC ARTHROPATHY
     Dosage: 300 MG, QW(FOR 5 WEEKS),THEN ONCE EVERY 4 WEEKS
     Route: 058
     Dates: start: 20200304

REACTIONS (15)
  - Arthritis [Unknown]
  - Scoliosis [Unknown]
  - Psoriatic arthropathy [Unknown]
  - Inappropriate schedule of product administration [Unknown]
  - Osteoarthritis [Unknown]
  - Device malfunction [Unknown]
  - Dysstasia [Unknown]
  - Spinal stenosis [Unknown]
  - Arthralgia [Unknown]
  - Intervertebral disc compression [Unknown]
  - Erythema [Unknown]
  - Psoriasis [Not Recovered/Not Resolved]
  - Memory impairment [Unknown]
  - Therapeutic product effect decreased [Unknown]
  - Gait disturbance [Unknown]
